FAERS Safety Report 8024774-6 (Version None)
Quarter: 2012Q1

REPORT INFORMATION
  Report Type: 
  Country: None (occurrence: None)
  Receive Date: 20120105
  Receipt Date: 20111222
  Transmission Date: 20120608
  Serious: Yes (Hospitalization)
  Sender: FDA-Public Use
  Company Number: US-UCBSA-030685

PATIENT
  Age: 61 Year
  Sex: Female
  Weight: 170.1 kg

DRUGS (13)
  1. OXYCODONE [Concomitant]
     Indication: CROHN'S DISEASE
  2. MAGNESIUM OXIDE [Concomitant]
  3. PERCOCET [Concomitant]
     Dosage: 5/325 EVERY 4 HOURS
  4. CIMZIA [Suspect]
     Route: 058
     Dates: start: 20100427
  5. VITAMIN D [Concomitant]
     Dosage: 5000 UNITS WEEKLY
  6. DICYCLOMINE [Concomitant]
  7. CIMZIA [Suspect]
     Indication: CROHN'S DISEASE
     Route: 058
     Dates: start: 20100303, end: 20100330
  8. DILTIAZEM HCL [Concomitant]
     Indication: CROHN'S DISEASE
  9. PREDNISONE TAB [Concomitant]
     Indication: CROHN'S DISEASE
  10. ADVAIR DISKUS 100/50 [Concomitant]
     Dosage: 250/50
  11. GABAPENTIN [Concomitant]
  12. BUDESONIDE [Concomitant]
     Indication: CROHN'S DISEASE
     Dates: start: 20080801, end: 20110727
  13. ENTOCORT EC [Concomitant]

REACTIONS (2)
  - DIVERTICULITIS [None]
  - ASTHMA [None]
